FAERS Safety Report 8136047-1 (Version None)
Quarter: 2012Q1

REPORT INFORMATION
  Report Type: 
  Country: None (occurrence: None)
  Receive Date: 20120214
  Receipt Date: 20110302
  Transmission Date: 20120608
  Serious: No
  Sender: FDA-Public Use
  Company Number: US-TEVA-269474USA

PATIENT
  Sex: Female

DRUGS (1)
  1. CROMOLYN SODIUM [Suspect]
     Dosage: 20 MG/2 ML

REACTIONS (3)
  - DRY THROAT [None]
  - APHONIA [None]
  - DYSPHONIA [None]
